FAERS Safety Report 6906237-1 (Version None)
Quarter: 2010Q3

REPORT INFORMATION
  Report Type: 
  Country: None (occurrence: None)
  Receive Date: 20100804
  Receipt Date: 20100730
  Transmission Date: 20110219
  Serious: Yes (Hospitalization)
  Sender: FDA-Public Use
  Company Number: US-GILEAD-2010-0030450

PATIENT
  Age: 58 Year
  Sex: Male
  Weight: 90.8 kg

DRUGS (12)
  1. LETAIRIS [Suspect]
     Indication: PULMONARY ARTERIAL HYPERTENSION
     Route: 048
     Dates: start: 20091225
  2. REMODULIN [Concomitant]
  3. OXYGEN [Concomitant]
  4. FUROSEMIDE [Concomitant]
  5. ATENOLOL [Concomitant]
  6. LISINOPRIL [Concomitant]
  7. CLONIDINE [Concomitant]
  8. ACTONEL [Concomitant]
  9. CRESTOR [Concomitant]
  10. PREDNISONE [Concomitant]
  11. AVANDAMET [Concomitant]
  12. ZOFRAN [Concomitant]

REACTIONS (1)
  - COLLAPSE OF LUNG [None]
